FAERS Safety Report 5826589-3 (Version None)
Quarter: 2008Q3

REPORT INFORMATION
  Report Type: 
  Country: None (occurrence: None)
  Receive Date: 20080728
  Receipt Date: 20080728
  Transmission Date: 20090109
  Serious: No
  Sender: FDA-Public Use
  Company Number: None

PATIENT
  Age: 58 Year
  Sex: Female
  Weight: 77.1115 kg

DRUGS (1)
  1. BONIVA [Suspect]
     Indication: OSTEOPENIA
     Dosage: ONE TABLET DAILY HEMODIALYSI
     Route: 010
     Dates: start: 20080101, end: 20080701

REACTIONS (7)
  - DYSSTASIA [None]
  - EXOSTOSIS [None]
  - GAIT DISTURBANCE [None]
  - JOINT SPRAIN [None]
  - PAIN IN EXTREMITY [None]
  - PLANTAR FASCIITIS [None]
  - TENDONITIS [None]
